FAERS Safety Report 4866733-8 (Version None)
Quarter: 2005Q4

REPORT INFORMATION
  Report Type: 
  Country: None (occurrence: None)
  Receive Date: 20051221
  Receipt Date: 20051213
  Transmission Date: 20060501
  Serious: Yes (Hospitalization)
  Sender: FDA-Public Use
  Company Number: 2005147937

PATIENT
  Sex: Female

DRUGS (6)
  1. ZIPRASIDONE HCL [Suspect]
     Indication: DEPRESSION
     Dosage: 20 MG (20 MG, 1 IN 1 D), ORAL
     Route: 048
     Dates: start: 20050518
  2. ZIPRASIDONE HCL [Suspect]
     Indication: PSYCHOTIC DISORDER
     Dosage: 20 MG (20 MG, 1 IN 1 D), ORAL
     Route: 048
     Dates: start: 20050518
  3. LORAZEPAM [Concomitant]
  4. CYMBALTA [Concomitant]
  5. LITHIUM CARBONATE [Concomitant]
  6. NITRAZEPAM [Concomitant]

REACTIONS (1)
  - PARKINSONISM [None]
